FAERS Safety Report 20038372 (Version 3)
Quarter: 2021Q4

REPORT INFORMATION
  Report Type: Report from Study
  Country: CN (occurrence: CN)
  Receive Date: 20211105
  Receipt Date: 20211206
  Transmission Date: 20220303
  Serious: Yes (Hospitalization)
  Sender: FDA-Public Use
  Company Number: CN-PFIZER INC-202101430954

PATIENT
  Age: 58 Year
  Sex: Female

DRUGS (5)
  1. EPIRUBICIN HYDROCHLORIDE [Suspect]
     Active Substance: EPIRUBICIN HYDROCHLORIDE
     Dosage: 10 MG, EVERY 2 WEEKS
     Route: 041
     Dates: start: 20210929
  2. PACLITAXEL [Suspect]
     Active Substance: PACLITAXEL
     Dosage: 0.1 G, EVERY WEEK (D1/D8/D15/ONE WEEK REST)
     Route: 041
     Dates: start: 20210608, end: 20210927
  3. CARBOPLATIN [Suspect]
     Active Substance: CARBOPLATIN
     Dosage: 100 MG, EVERY WEEK (D1/D8/D15/ONE WEEK REST)
     Route: 041
     Dates: start: 20210608, end: 20210927
  4. CYCLOPHOSPHAMIDE [Suspect]
     Active Substance: CYCLOPHOSPHAMIDE
     Dosage: 200 MG, EVERY 2 WEEKS
     Route: 041
     Dates: start: 20210929
  5. INVESTIGATIONAL PRODUCT [Suspect]
     Active Substance: INVESTIGATIONAL PRODUCT
     Indication: Breast cancer
     Dosage: 200 MG, EVERY 2 WEEKS
     Route: 041
     Dates: start: 20210608

REACTIONS (1)
  - Haemorrhoids [Recovered/Resolved]

NARRATIVE: CASE EVENT DATE: 20211012
